FAERS Safety Report 7360657-2 (Version None)
Quarter: 2011Q1

REPORT INFORMATION
  Report Type: 
  Country: None (occurrence: None)
  Receive Date: 20110318
  Receipt Date: 20101228
  Transmission Date: 20110831
  Serious: Yes (Death, Other)
  Sender: FDA-Public Use
  Company Number: US-RANBAXY-2010RR-40470

PATIENT
  Age: 48 Year
  Sex: Male

DRUGS (6)
  1. MIRTAZAPINE [Suspect]
     Indication: DEPRESSION
     Dosage: UNK
     Route: 048
     Dates: start: 20091022, end: 20101201
  2. BUSPIRONE HCL [Suspect]
     Indication: ANXIETY
     Dosage: 15 MG, TID
     Route: 048
     Dates: start: 20090101, end: 20101201
  3. VERAPAMIL [Suspect]
     Indication: HYPERTENSION
     Dosage: UNK
  4. PLIVA [Suspect]
     Indication: DEPRESSION
  5. PLIVA [Suspect]
     Indication: ANXIETY
     Dosage: 50 MG, QD
     Route: 048
     Dates: start: 20100925, end: 20101121
  6. GABAPENTIN [Suspect]
     Indication: PAIN
     Dosage: 100 MG, TID
     Route: 048
     Dates: start: 20100925, end: 20101101

REACTIONS (8)
  - FEAR OF WEIGHT GAIN [None]
  - DEPRESSION [None]
  - ABDOMINAL DISCOMFORT [None]
  - CHEST PAIN [None]
  - HEADACHE [None]
  - COMPLETED SUICIDE [None]
  - ANXIETY [None]
  - DYSPEPSIA [None]
